FAERS Safety Report 13685299 (Version 3)
Quarter: 2017Q3

REPORT INFORMATION
  Report Type: Report from Study
  Country: CA (occurrence: CA)
  Receive Date: 20170623
  Receipt Date: 20170705
  Transmission Date: 20171127
  Serious: Yes (Hospitalization, Other)
  Sender: FDA-Public Use
  Company Number: CA-GLAXOSMITHKLINE-CA2017GSK094529

PATIENT
  Sex: Female

DRUGS (1)
  1. SALBUTAMOL SULPHATE [Suspect]
     Active Substance: ALBUTEROL SULFATE
     Indication: PRODUCT USED FOR UNKNOWN INDICATION
     Dosage: UNK

REACTIONS (7)
  - Angina pectoris [Unknown]
  - Arthritis [Unknown]
  - Atrial fibrillation [Unknown]
  - Asthma [Unknown]
  - Infection [Unknown]
  - Dyspnoea [Unknown]
  - Fibromyalgia [Unknown]
